FAERS Safety Report 7024603-3 (Version None)
Quarter: 2010Q4

REPORT INFORMATION
  Report Type: 
  Country: None (occurrence: None)
  Receive Date: 20101001
  Receipt Date: 20100921
  Transmission Date: 20110411
  Serious: Yes (Death)
  Sender: FDA-Public Use
  Company Number: NL-PFIZER INC-2010101302

PATIENT
  Age: 60 Year
  Sex: Male

DRUGS (9)
  1. REVATIO [Suspect]
     Indication: PULMONARY HYPERTENSION
     Dosage: 20 MG, UNK
     Route: 048
     Dates: start: 20080125
  2. FLOLAN [Concomitant]
     Indication: PULMONARY ARTERIAL HYPERTENSION
     Dosage: UNK
     Route: 042
     Dates: start: 20081113
  3. FUROSEMIDE [Concomitant]
     Indication: CARDIAC FAILURE
     Dosage: 40 MG, UNK
     Route: 048
     Dates: start: 20080125
  4. LANOXIN [Concomitant]
     Dosage: 0.125 MG, 1X/DAY
     Dates: start: 20100301
  5. SPIRONOLACTONE [Concomitant]
     Indication: CARDIAC FAILURE
     Dosage: 25 MG, UNK
     Route: 048
     Dates: start: 20080821
  6. BUMETANIDE [Concomitant]
     Indication: BLOOD PRESSURE
     Dosage: 2 MG, 2X/DAY
     Dates: start: 20090203
  7. ALLOPURINOL [Concomitant]
     Indication: GOUT
     Dosage: 100 UNK, UNK
     Route: 048
     Dates: start: 20090203
  8. COLCHICINE [Concomitant]
     Dosage: 0.5 MG, 1X/DAY
     Dates: start: 20090203
  9. ACENOCOUMAROL [Concomitant]
     Indication: PULMONARY EMBOLISM
     Dosage: UNK
     Route: 048
     Dates: start: 20000501

REACTIONS (2)
  - CARDIAC FAILURE [None]
  - PULMONARY HYPERTENSION [None]
